FAERS Safety Report 14954370 (Version 2)
Quarter: 2018Q2

REPORT INFORMATION
  Report Type: Spontaneous
  Country: US (occurrence: US)
  Receive Date: 20180530
  Receipt Date: 20180604
  Transmission Date: 20180711
  Serious: Yes (Other)
  Sender: FDA-Public Use
  Company Number: US-PFIZER INC-2018218984

PATIENT
  Age: 59 Year
  Sex: Male

DRUGS (1)
  1. XELJANZ [Suspect]
     Active Substance: TOFACITINIB CITRATE
     Dosage: 5 MG, 2X/DAY
     Route: 048
     Dates: start: 20180224, end: 20180525

REACTIONS (5)
  - Cellulitis [Unknown]
  - Oedema [Unknown]
  - Diabetes mellitus [Unknown]
  - Impaired healing [Unknown]
  - Wound secretion [Unknown]

NARRATIVE: CASE EVENT DATE: 20180525
